FAERS Safety Report 10177930 (Version 1)
Quarter: 2014Q2

REPORT INFORMATION
  Report Type: Report from Study
  Country: BR (occurrence: BR)
  Receive Date: 20140516
  Receipt Date: 20140516
  Transmission Date: 20141212
  Serious: Yes (Hospitalization, Other)
  Sender: FDA-Public Use
  Company Number: PHHY2014BR059722

PATIENT
  Age: 73 Year
  Sex: Male
  Weight: 76 kg

DRUGS (5)
  1. DIOVAN HCT [Suspect]
     Indication: CARDIAC DISORDER
     Dosage: 1 DF (160/12.5MG), DAILY
     Route: 048
  2. DIOVAN HCT [Suspect]
     Indication: OFF LABEL USE
  3. GALVUS MET [Suspect]
     Indication: DIABETES MELLITUS
     Dosage: 2 DF (850/50MG), DAILY
     Route: 048
  4. ARADOIS [Concomitant]
     Indication: HYPERTENSION
     Dosage: 50 MG, DAILY
     Route: 048
  5. XALATAN [Concomitant]
     Indication: GLAUCOMA
     Dosage: 2 DF, DAILY (1 IN EACH EYE)

REACTIONS (3)
  - Transient ischaemic attack [Recovering/Resolving]
  - Coagulopathy [Unknown]
  - Arrhythmia [Unknown]
